FAERS Safety Report 5605901-4 (Version None)
Quarter: 2008Q1

REPORT INFORMATION
  Report Type: 
  Country: None (occurrence: None)
  Receive Date: 20080125
  Receipt Date: 20080110
  Transmission Date: 20080703
  Serious: Yes (Hospitalization)
  Sender: FDA-Public Use
  Company Number: SPV1-2008-00044

PATIENT
  Age: 12 Year
  Sex: Male
  Weight: 34 kg

DRUGS (3)
  1. VYVANSE [Suspect]
     Indication: ATTENTION DEFICIT/HYPERACTIVITY DISORDER
     Dosage: 30 MG, 1X/DAY:QD, ORAL
     Route: 048
     Dates: start: 20071030, end: 20071030
  2. STRATTERA [Concomitant]
  3. SEROQUEL [Concomitant]

REACTIONS (3)
  - HEART RATE INCREASED [None]
  - HYPERTENSION [None]
  - HYPERVENTILATION [None]
